FAERS Safety Report 15744820 (Version 7)
Quarter: 2019Q2

REPORT INFORMATION
  Report Type: Report from Study
  Country: US (occurrence: US)
  Receive Date: 20181220
  Receipt Date: 20190624
  Transmission Date: 20190711
  Serious: Yes (Hospitalization, Other)
  Sender: FDA-Public Use
  Company Number: US-EISAI MEDICAL RESEARCH-EC-2018-049442

PATIENT
  Age: 70 Year
  Sex: Female
  Weight: 58.6 kg

DRUGS (23)
  1. ASPIRIN. [Concomitant]
     Active Substance: ASPIRIN
  2. ERIBULIN [Suspect]
     Active Substance: ERIBULIN
     Route: 041
     Dates: start: 20190325
  3. PEMBROLIZUMAB. [Suspect]
     Active Substance: PEMBROLIZUMAB
     Indication: TRIPLE NEGATIVE BREAST CANCER
     Route: 041
     Dates: start: 20180130, end: 20190212
  4. CENTRUM MULTIVITAMIN [Concomitant]
  5. LORATADINE. [Concomitant]
     Active Substance: LORATADINE
  6. SENAKOT [Concomitant]
  7. RANITIDINE. [Concomitant]
     Active Substance: RANITIDINE
  8. ERIBULIN [Suspect]
     Active Substance: ERIBULIN
     Route: 041
     Dates: start: 20190102, end: 20190219
  9. PRESERVISION AREDS [Concomitant]
     Active Substance: MINERALS\VITAMINS
  10. CALTRATE [Concomitant]
     Active Substance: CALCIUM CARBONATE
  11. DOXYCYCLINE HYCLATE. [Concomitant]
     Active Substance: DOXYCYCLINE HYCLATE
  12. LISINOPRIL. [Concomitant]
     Active Substance: LISINOPRIL
  13. METOPROLOL TARTRATE. [Concomitant]
     Active Substance: METOPROLOL TARTRATE
  14. PRAVASTATIN. [Concomitant]
     Active Substance: PRAVASTATIN
  15. FLONASE [Concomitant]
     Active Substance: FLUTICASONE PROPIONATE
  16. MIRALAX [Concomitant]
     Active Substance: POLYETHYLENE GLYCOL 3350
  17. PANTOPRAZOLE [Concomitant]
     Active Substance: PANTOPRAZOLE
  18. ERIBULIN [Suspect]
     Active Substance: ERIBULIN
     Indication: TRIPLE NEGATIVE BREAST CANCER
     Route: 041
     Dates: start: 20180130, end: 20180814
  19. ERIBULIN [Suspect]
     Active Substance: ERIBULIN
     Route: 041
     Dates: start: 20180917, end: 20181211
  20. LORAZEPAM. [Concomitant]
     Active Substance: LORAZEPAM
  21. RIZATRIPTAN. [Concomitant]
     Active Substance: RIZATRIPTAN
  22. ZOFRAN [Concomitant]
     Active Substance: ONDANSETRON HYDROCHLORIDE
  23. TYLENOL [Concomitant]
     Active Substance: ACETAMINOPHEN

REACTIONS (6)
  - Anaemia [Recovered/Resolved]
  - Duodenitis [Recovered/Resolved]
  - Duodenal ulcer [Recovered/Resolved]
  - Nephritis [Recovered/Resolved]
  - Gastric ulcer [Recovered/Resolved]
  - Acute kidney injury [Recovered/Resolved]

NARRATIVE: CASE EVENT DATE: 20181217
